FAERS Safety Report 4847593-8 (Version None)
Quarter: 2005Q4

REPORT INFORMATION
  Report Type: 
  Country: None (occurrence: None)
  Receive Date: 20051205
  Receipt Date: 20051117
  Transmission Date: 20060501
  Serious: Yes (Other)
  Sender: FDA-Public Use
  Company Number: ES-2005-023206

PATIENT
  Age: 31 Year
  Sex: Female

DRUGS (5)
  1. BETAFERON 250 UG, 500 UG AND COPAXONE(BETAFERON (SH Y03967A)) INJECTIO [Suspect]
     Indication: RELAPSING-REMITTING MULTIPLE SCLEROSIS
     Dosage: 8 OR 16 MIU, EVERY 2D, SUBCUTANEOUS
     Route: 058
     Dates: start: 20050302, end: 20050604
  2. OMEPRAZOLE [Concomitant]
  3. IBUPROFEN [Concomitant]
  4. METHYLPREDNISOLONE [Concomitant]
  5. GABAPENTIN [Concomitant]

REACTIONS (1)
  - INJECTION SITE ULCER [None]
